FAERS Safety Report 9733053 (Version 3)
Quarter: 2015Q3

REPORT INFORMATION
  Report Type: Spontaneous
  Country: US (occurrence: US)
  Receive Date: 20131204
  Receipt Date: 20150804
  Transmission Date: 20151125
  Serious: Yes (Hospitalization)
  Sender: FDA-Public Use
  Company Number: US-GILEAD-2009-0022586

PATIENT
  Age: 73 Year
  Sex: Male
  Weight: 145.15 kg

DRUGS (18)
  1. CELEXA [Concomitant]
     Active Substance: CITALOPRAM HYDROBROMIDE
  2. TRANDOLAPRIL. [Concomitant]
     Active Substance: TRANDOLAPRIL
  3. COUMADIN [Concomitant]
     Active Substance: WARFARIN SODIUM
  4. REVATIO [Concomitant]
     Active Substance: SILDENAFIL CITRATE
  5. NEURONTIN [Concomitant]
     Active Substance: GABAPENTIN
  6. SYMBICORT [Concomitant]
     Active Substance: BUDESONIDE\FORMOTEROL FUMARATE DIHYDRATE
  7. IMODIUM AD [Concomitant]
     Active Substance: LOPERAMIDE HYDROCHLORIDE
  8. LASIX [Concomitant]
     Active Substance: FUROSEMIDE
  9. PREDNISONE. [Concomitant]
     Active Substance: PREDNISONE
  10. POTASSIUM [Concomitant]
     Active Substance: POTASSIUM
  11. GLUCOTROL XL [Concomitant]
     Active Substance: GLIPIZIDE
  12. LETAIRIS [Suspect]
     Active Substance: AMBRISENTAN
     Indication: PULMONARY ARTERIAL HYPERTENSION
     Route: 048
     Dates: start: 20080806
  13. ALBUTEROL. [Concomitant]
     Active Substance: ALBUTEROL
  14. PARACETAMOL/HYDROCODONE BITARTRATE [Concomitant]
  15. PEPCID [Concomitant]
     Active Substance: FAMOTIDINE
  16. AMBIEN [Concomitant]
     Active Substance: ZOLPIDEM TARTRATE
  17. WELCHOL [Concomitant]
     Active Substance: COLESEVELAM HYDROCHLORIDE
  18. REQUIP [Concomitant]
     Active Substance: ROPINIROLE HYDROCHLORIDE

REACTIONS (3)
  - Fluid overload [Unknown]
  - Dyspnoea [Unknown]
  - No therapeutic response [Unknown]
